FAERS Safety Report 20012348 (Version 1)
Quarter: 2021Q4

REPORT INFORMATION
  Report Type: Spontaneous
  Country: CN (occurrence: CN)
  Receive Date: 20211029
  Receipt Date: 20211029
  Transmission Date: 20220304
  Serious: Yes (Other)
  Sender: FDA-Public Use
  Company Number: CN-AMERICAN REGENT INC-2021002802

PATIENT
  Sex: Female
  Weight: 70 kg

DRUGS (3)
  1. VENOFER [Suspect]
     Active Substance: IRON SUCROSE
     Indication: Anaemia
     Dosage: 2 VIALS, ONCE IN 2 DAYS (2 DOSAGE FORMS, 1 IN 2 D)
     Dates: start: 20210917, end: 20210928
  2. FLURBIPROFEN AXETIL [Concomitant]
     Active Substance: FLURBIPROFEN AXETIL
     Indication: Analgesic therapy
     Dosage: 50 MG, 2 IN 1 D
     Dates: start: 20210917, end: 20210928
  3. ERYTHROPOIETIN [Concomitant]
     Active Substance: ERYTHROPOIETIN
     Indication: Anaemia
     Dosage: 1 BOTTLE/ (CHO CELL) (1 DOSAGE FORM, 1 IN 1 D)
     Route: 058
     Dates: start: 20210917, end: 20210928

REACTIONS (1)
  - Drug eruption [Unknown]

NARRATIVE: CASE EVENT DATE: 20210928
